FAERS Safety Report 16802789 (Version 1)
Quarter: 2019Q3

REPORT INFORMATION
  Report Type: Spontaneous
  Country: CZ (occurrence: CZ)
  Receive Date: 20190912
  Receipt Date: 20190912
  Transmission Date: 20191005
  Serious: Yes (Other)
  Sender: FDA-Public Use
  Company Number: CZ-AUROBINDO-AUR-APL-2019-059524

PATIENT
  Sex: Female

DRUGS (2)
  1. HERCEPTIN [Suspect]
     Active Substance: TRASTUZUMAB
     Indication: INVASIVE DUCTAL BREAST CARCINOMA
     Dosage: 600 MILLIGRAM, 3 TIMES A WEEK
     Route: 058
     Dates: start: 201505
  2. LETROZOLE. [Suspect]
     Active Substance: LETROZOLE
     Indication: INVASIVE DUCTAL BREAST CARCINOMA
     Dosage: UNK
     Route: 065
     Dates: start: 2015

REACTIONS (3)
  - Metastases to spine [Recovering/Resolving]
  - Malignant neoplasm progression [Unknown]
  - Metastases to bone [Recovering/Resolving]

NARRATIVE: CASE EVENT DATE: 201511
